FAERS Safety Report 4577424-5 (Version None)
Quarter: 2005Q1

REPORT INFORMATION
  Report Type: 
  Country: None (occurrence: None)
  Receive Date: 20050208
  Receipt Date: 20050121
  Transmission Date: 20050727
  Serious: Yes (Hospitalization)
  Sender: FDA-Public Use
  Company Number: F01200403928

PATIENT
  Age: 56 Year
  Sex: Female

DRUGS (7)
  1. OXALIPLATIN - SOLUTION - 271 MG [Suspect]
     Indication: COLORECTAL CANCER METASTATIC
     Dosage: 271 MG Q3W, INTRAVENOUS NOS
     Route: 042
     Dates: start: 20041207, end: 20041207
  2. CAPECITABINE - FORM : UNKNOWN - UNIT DOSE : UNKNOWN [Suspect]
     Dosage: NI
  3. BEVACIZUMAB OR PLACEBO - SOLUTION - 690 MG [Suspect]
     Dosage: 690 MG Q3W, INTRAVENOUS
     Route: 042
     Dates: start: 20041207, end: 20041207
  4. PRAVACHOL [Concomitant]
  5. ZOFRAN [Concomitant]
  6. DEXAMETHASONE [Concomitant]
  7. MAXOLON [Concomitant]

REACTIONS (3)
  - DYSAESTHESIA PHARYNX [None]
  - LARYNGOSPASM [None]
  - PAIN IN EXTREMITY [None]
